FAERS Safety Report 5893376-X (Version None)
Quarter: 2008Q3

REPORT INFORMATION
  Report Type: 
  Country: None (occurrence: None)
  Receive Date: 20080923
  Receipt Date: 20080918
  Transmission Date: 20090109
  Serious: Yes (Disabling)
  Sender: FDA-Public Use
  Company Number: US-MERCK-0805USA04873

PATIENT
  Age: 52 Year
  Sex: Female

DRUGS (1)
  1. FOSAMAX [Suspect]
     Route: 048

REACTIONS (14)
  - ABDOMINAL PAIN UPPER [None]
  - ANXIETY [None]
  - ARTHROPATHY [None]
  - BACK DISORDER [None]
  - DEPRESSION [None]
  - DYSPEPSIA [None]
  - GASTROOESOPHAGEAL REFLUX DISEASE [None]
  - JAW DISORDER [None]
  - ORAL PAIN [None]
  - OSTEONECROSIS [None]
  - RESORPTION BONE INCREASED [None]
  - RHINITIS [None]
  - SALIVARY GLAND CANCER [None]
  - TINNITUS [None]
